FAERS Safety Report 10662795 (Version 2)
Quarter: 2014Q4

REPORT INFORMATION
  Report Type: Report from Study
  Country: FR (occurrence: FR)
  Receive Date: 20141218
  Receipt Date: 20141224
  Transmission Date: 20150529
  Serious: Yes (Other)
  Sender: FDA-Public Use
  Company Number: FR-PFIZER INC-2014339350

PATIENT

DRUGS (2)
  1. IRINOTECAN HCL [Suspect]
     Active Substance: IRINOTECAN HYDROCHLORIDE
     Indication: METASTASES TO PERITONEUM
     Dosage: 100 MG/M2, UNK
     Route: 033
  2. MITOMYCIN C [Concomitant]
     Active Substance: MITOMYCIN
     Indication: METASTASES TO PERITONEUM
     Dosage: 0.7 MG/KG, UNK
     Route: 033

REACTIONS (1)
  - Neutropenia [Unknown]
